FAERS Safety Report 24570531 (Version 1)
Quarter: 2024Q4

REPORT INFORMATION
  Report Type: Spontaneous
  Country: US (occurrence: US)
  Receive Date: 20241031
  Receipt Date: 20241031
  Transmission Date: 20250114
  Serious: No
  Sender: MERCK
  Company Number: US-009507513-2410USA004349

PATIENT
  Age: 42 Year
  Sex: Female

DRUGS (1)
  1. NOXAFIL [Suspect]
     Active Substance: POSACONAZOLE
     Dosage: PLANNED 1-YEAR TREATMENT
     Route: 048

REACTIONS (1)
  - Product use in unapproved indication [Unknown]
